FAERS Safety Report 5340999-2 (Version None)
Quarter: 2007Q2

REPORT INFORMATION
  Report Type: 
  Country: None (occurrence: None)
  Receive Date: 20070530
  Receipt Date: 20070523
  Transmission Date: 20071010
  Serious: Yes (Other)
  Sender: FDA-Public Use
  Company Number: CHPA2007US06282

PATIENT
  Age: 55 Year
  Sex: Female

DRUGS (3)
  1. NICOTINE [Suspect]
     Indication: SMOKING CESSATION THERAPY
     Dosage: 21 MG, QD, TRANSDERMAL
     Route: 062
     Dates: start: 20070205
  2. NICOTINE [Suspect]
     Indication: SMOKING CESSATION THERAPY
     Dosage: SEE IMAGE
     Route: 062
     Dates: start: 20070305, end: 20070305
  3. NICOTINE [Suspect]
     Indication: SMOKING CESSATION THERAPY
     Dosage: SEE IMAGE
     Route: 062
     Dates: start: 20070326, end: 20070408

REACTIONS (7)
  - DISTURBANCE IN ATTENTION [None]
  - FEELING ABNORMAL [None]
  - HYPERACUSIS [None]
  - HYPERAESTHESIA [None]
  - PARANOIA [None]
  - TREATMENT NONCOMPLIANCE [None]
  - VISUAL FIELD DEFECT [None]
